FAERS Safety Report 11118221 (Version 1)
Quarter: 2015Q2

REPORT INFORMATION
  Report Type: Spontaneous
  Country: JP (occurrence: JP)
  Receive Date: 20150518
  Receipt Date: 20150518
  Transmission Date: 20150821
  Serious: Yes (Other)
  Sender: FDA-Public Use
  Company Number: JP-JNJFOC-20150505605

PATIENT
  Sex: Male

DRUGS (1)
  1. LISTERINE TOTAL CARE ZERO FRESHMINT [Suspect]
     Active Substance: SODIUM FLUORIDE
     Indication: DENTAL DISORDER PROPHYLAXIS
     Dosage: SWISH ABOUT 30 SECONDS ALL THE WAY IN THE MOUTH AFTER BRUSHING TEETH
     Route: 048
     Dates: start: 20150301

REACTIONS (3)
  - Salivary gland enlargement [Recovering/Resolving]
  - Pain [Unknown]
  - Salivary gland disorder [Unknown]

NARRATIVE: CASE EVENT DATE: 20150505
